FAERS Safety Report 26073204 (Version 2)
Quarter: 2025Q4

REPORT INFORMATION
  Report Type: Spontaneous
  Country: JP (occurrence: JP)
  Receive Date: 20251121
  Receipt Date: 20251201
  Transmission Date: 20260117
  Serious: Yes (Hospitalization)
  Sender: ABBVIE
  Company Number: JP-ABBVIE-6552131

PATIENT
  Age: 35 Year
  Sex: Male

DRUGS (2)
  1. RINVOQ [Suspect]
     Active Substance: UPADACITINIB
     Indication: Dermatitis atopic
     Dosage: FORM STRENGTH: 15 MILLIGRAM
     Route: 048
     Dates: start: 20250701, end: 20251107
  2. DELGOCITINIB [Concomitant]
     Active Substance: DELGOCITINIB
     Indication: Dermatitis atopic
     Dosage: 10 GRAM
     Dates: start: 20250701, end: 20251107

REACTIONS (2)
  - Meningitis [Recovering/Resolving]
  - Herpes zoster [Recovering/Resolving]

NARRATIVE: CASE EVENT DATE: 20251107
